FAERS Safety Report 21114705 (Version 1)
Quarter: 2022Q3

REPORT INFORMATION
  Report Type: Spontaneous
  Country: US (occurrence: US)
  Receive Date: 20220721
  Receipt Date: 20220721
  Transmission Date: 20221027
  Serious: No
  Sender: FDA-Public Use
  Company Number: US-MEDEXUS PHARMA, INC.-2021MED00352

PATIENT
  Age: 52 Year
  Sex: Female
  Weight: 68.027 kg

DRUGS (2)
  1. RASUVO [Suspect]
     Active Substance: METHOTREXATE SODIUM
     Indication: Rheumatoid arthritis
     Dosage: UNK, 1X/WEEK ON FRIDAY, INJECTED SOMETIMES IN BELLY, SOMETIMES IN LEG
     Dates: end: 2021
  2. UNSPECIFIED OVER THE COUNTER PRODUCT FOR PAIN [Concomitant]

REACTIONS (3)
  - Inflammation [Unknown]
  - Product dose omission issue [Not Recovered/Not Resolved]
  - Arthralgia [Not Recovered/Not Resolved]

NARRATIVE: CASE EVENT DATE: 20210901
